FAERS Safety Report 19609098 (Version 1)
Quarter: 2021Q3

REPORT INFORMATION
  Report Type: Spontaneous
  Country: US (occurrence: US)
  Receive Date: 20210725
  Receipt Date: 20210725
  Transmission Date: 20211014
  Serious: Yes (Hospitalization, Disabling)
  Sender: FDA-Public Use
  Company Number: None

PATIENT
  Age: 57 Year
  Sex: Female
  Weight: 61.2 kg

DRUGS (11)
  1. NP THYROID [Concomitant]
     Active Substance: LEVOTHYROXINE\LIOTHYRONINE
  2. MULTIVITAMINS [Concomitant]
     Active Substance: VITAMINS
  3. CRANBERRY SUPPLEMENTS [Concomitant]
  4. CARLSON^S FISH OIL [Concomitant]
  5. CIPRO [Suspect]
     Active Substance: CIPROFLOXACIN HYDROCHLORIDE
     Indication: URINARY TRACT INFECTION
     Dates: start: 20201121, end: 20201122
  6. VITAMIN C [Concomitant]
     Active Substance: ASCORBIC ACID
  7. VITAMIN K3 [Concomitant]
  8. NITROFURANTOIN MONOHYDRATE MACROCRYSTALS [Suspect]
     Active Substance: NITROFURANTOIN\NITROFURANTOIN MONOHYDRATE
     Indication: URINARY TRACT INFECTION
     Dates: start: 20201122, end: 20201127
  9. OSTINOL ADVANCED [Concomitant]
  10. VIT D [Concomitant]
     Active Substance: VITAMIN D NOS
  11. VITAMIN K2 [Concomitant]
     Active Substance: MENAQUINONE 6

REACTIONS (3)
  - Tendonitis [None]
  - Cutaneous vasculitis [None]
  - Rash [None]

NARRATIVE: CASE EVENT DATE: 20201121
